FAERS Safety Report 11026300 (Version 2)
Quarter: 2015Q2

REPORT INFORMATION
  Report Type: Spontaneous
  Country: TW (occurrence: TW)
  Receive Date: 20150414
  Receipt Date: 20150630
  Transmission Date: 20150821
  Serious: Yes (Other)
  Sender: FDA-Public Use
  Company Number: TW-JNJFOC-20150401637

PATIENT
  Age: 46 Year
  Sex: Male
  Weight: 75 kg

DRUGS (5)
  1. STELARA [Suspect]
     Active Substance: USTEKINUMAB
     Indication: PSORIASIS
     Route: 058
     Dates: start: 20130628
  2. METHOTREXATE [Concomitant]
     Active Substance: METHOTREXATE
     Indication: PEMPHIGUS
     Dosage: 7.5-17.5MG
     Route: 065
     Dates: start: 20130823, end: 20150326
  3. FOLIC ACID. [Concomitant]
     Active Substance: FOLIC ACID
     Indication: PEMPHIGUS
     Dosage: 5-10MG
     Route: 065
     Dates: start: 20130823, end: 20150326
  4. CETRIZINE [Concomitant]
     Active Substance: CETIRIZINE HYDROCHLORIDE
     Indication: RHINITIS ALLERGIC
     Route: 065
  5. DAIVOBET [Concomitant]
     Active Substance: BETAMETHASONE DIPROPIONATE\CALCIPOTRIENE
     Route: 065
     Dates: start: 20150424

REACTIONS (1)
  - Mycobacterium tuberculosis complex test positive [Recovered/Resolved]

NARRATIVE: CASE EVENT DATE: 20140523
